FAERS Safety Report 5243059-4 (Version None)
Quarter: 2007Q1

REPORT INFORMATION
  Report Type: 
  Country: None (occurrence: None)
  Receive Date: 20070220
  Receipt Date: 20070220
  Transmission Date: 20070707
  Serious: Yes (Hospitalization)
  Sender: FDA-Public Use
  Company Number: None

PATIENT
  Age: 52 Year
  Sex: Male

DRUGS (2)
  1. NOXAFIL [Suspect]
     Indication: LUNG INFECTION
     Dosage: 400MG  BID  PO
     Route: 048
     Dates: start: 20070119, end: 20070130
  2. NOXAFIL [Suspect]
     Indication: TRANSPLANT
     Dosage: 400MG  BID  PO
     Route: 048
     Dates: start: 20070119, end: 20070130

REACTIONS (9)
  - CARDIAC MURMUR [None]
  - CREPITATIONS [None]
  - DYSPNOEA [None]
  - HYPOAESTHESIA [None]
  - OEDEMA PERIPHERAL [None]
  - PALPITATIONS [None]
  - PITTING OEDEMA [None]
  - RALES [None]
  - RENAL IMPAIRMENT [None]
